FAERS Safety Report 19575962 (Version 1)
Quarter: 2021Q3

REPORT INFORMATION
  Report Type: Spontaneous
  Country: NA (occurrence: NA)
  Receive Date: 20210718
  Receipt Date: 20210718
  Transmission Date: 20211014
  Serious: No
  Sender: FDA-Public Use
  Company Number: None

PATIENT
  Age: 36 Year
  Sex: Female
  Weight: 60 kg

DRUGS (2)
  1. CIPROFLOXACIN. [Suspect]
     Active Substance: CIPROFLOXACIN
     Indication: URINARY TRACT INFECTION
     Dosage: ?  QUANTITY:1 TABLET(S);?
     Route: 048
     Dates: start: 20210709, end: 20210711
  2. MAGNESIUM CITRATE. [Concomitant]
     Active Substance: MAGNESIUM CITRATE

REACTIONS (13)
  - Fatigue [None]
  - Headache [None]
  - Anxiety [None]
  - Vertigo [None]
  - Sleep disorder [None]
  - Tinnitus [None]
  - Joint noise [None]
  - Drug ineffective [None]
  - Nightmare [None]
  - Decreased appetite [None]
  - Lymphadenopathy [None]
  - Pain in extremity [None]
  - Disorientation [None]

NARRATIVE: CASE EVENT DATE: 20210710
